FAERS Safety Report 9660129 (Version 2)
Quarter: 2013Q4

REPORT INFORMATION
  Report Type: Spontaneous
  Country: US (occurrence: US)
  Receive Date: 20131031
  Receipt Date: 20131204
  Transmission Date: 20140711
  Serious: Yes (Other)
  Sender: FDA-Public Use
  Company Number: US-JNJFOC-20131017055

PATIENT
  Sex: Female
  Weight: 79.38 kg

DRUGS (18)
  1. TOPAMAX [Suspect]
     Indication: MIGRAINE PROPHYLAXIS
     Route: 048
  2. TOPAMAX [Suspect]
     Indication: MIGRAINE PROPHYLAXIS
     Route: 048
  3. IMITREX [Concomitant]
     Indication: MIGRAINE
     Route: 065
  4. FEMARA [Concomitant]
     Route: 065
  5. NORETHINDRONE [Concomitant]
     Indication: MENOPAUSE
     Route: 065
  6. HYDROCHLOROTHIAZIDE [Concomitant]
     Indication: MENOPAUSE
     Route: 065
  7. VITAMIN D [Concomitant]
     Dosage: 50000 U
     Route: 048
  8. MIRALAX [Concomitant]
     Route: 065
  9. AMITIZA [Concomitant]
     Indication: MUSCLE CONTRACTURE
     Route: 065
  10. SYNTHROID [Concomitant]
     Indication: THYROID DISORDER
     Route: 065
     Dates: start: 2012
  11. METFORMIN [Concomitant]
     Indication: DIABETES MELLITUS
     Route: 065
  12. WELLBUTRIN [Concomitant]
     Indication: DEPRESSION
     Route: 065
  13. DICYCLOMINE [Concomitant]
     Indication: ABDOMINAL PAIN
     Route: 065
  14. HYDROXYZINE [Concomitant]
     Indication: ANTIALLERGIC THERAPY
     Route: 065
  15. FLEXERIL [Concomitant]
     Route: 065
  16. PERCOCET [Concomitant]
     Indication: HEADACHE
     Route: 065
  17. KLONOPIN [Concomitant]
     Route: 065
  18. PROTONIX [Concomitant]
     Indication: GASTROOESOPHAGEAL REFLUX DISEASE
     Route: 065

REACTIONS (2)
  - Dementia Alzheimer^s type [Not Recovered/Not Resolved]
  - Migraine [Not Recovered/Not Resolved]
